FAERS Safety Report 9257320 (Version 2)
Quarter: 2014Q2

REPORT INFORMATION
  Report Type: Report from Study
  Country: BR (occurrence: BR)
  Receive Date: 20130426
  Receipt Date: 20140508
  Transmission Date: 20141212
  Serious: Yes (Death, Life-Threatening, Hospitalization, Disabling, Other)
  Sender: FDA-Public Use
  Company Number: PHHY2013BR040884

PATIENT
  Age: 55 Year
  Sex: Female
  Weight: 47 kg

DRUGS (3)
  1. SANDOSTATIN LAR [Suspect]
     Indication: BRAIN NEOPLASM
     Dosage: 30 MG, ONCE MONTHLY
     Route: 030
     Dates: start: 200507
  2. SANDOSTATIN LAR [Suspect]
     Indication: OFF LABEL USE
  3. INSULIN [Suspect]
     Indication: DIABETES MELLITUS
     Dosage: UNK UKN, BID

REACTIONS (14)
  - Respiratory arrest [Fatal]
  - Cerebral thrombosis [Fatal]
  - Hemiplegia [Fatal]
  - Convulsion [Fatal]
  - Multi-organ failure [Fatal]
  - Respiratory disorder [Unknown]
  - Dyspnoea [Unknown]
  - Lung neoplasm malignant [Unknown]
  - Second primary malignancy [Unknown]
  - Metastases to bone [Unknown]
  - Weight increased [Unknown]
  - Pain in extremity [Unknown]
  - Weight decreased [Unknown]
  - Asthenia [Unknown]
